FAERS Safety Report 20884820 (Version 1)
Quarter: 2022Q2

REPORT INFORMATION
  Report Type: Spontaneous
  Country: RO (occurrence: RO)
  Receive Date: 20220527
  Receipt Date: 20220527
  Transmission Date: 20220721
  Serious: Yes (Other)
  Sender: FDA-Public Use
  Company Number: RO-009507513-2205ROU006342

PATIENT
  Sex: Male

DRUGS (3)
  1. PEMBROLIZUMAB [Suspect]
     Active Substance: PEMBROLIZUMAB
     Dosage: DT: 200 MG
     Dates: start: 20211116
  2. CARBOPLATIN [Suspect]
     Active Substance: CARBOPLATIN
     Dosage: AUC 5
     Dates: start: 20211116
  3. FLUOROURACIL SODIUM [Suspect]
     Active Substance: FLUOROURACIL SODIUM
     Dosage: DAY 1-4
     Dates: start: 20211116

REACTIONS (5)
  - Cerebral ischaemia [Unknown]
  - Weight increased [Unknown]
  - Increased appetite [Unknown]
  - Central nervous system lesion [Unknown]
  - Anaemia [Unknown]

NARRATIVE: CASE EVENT DATE: 20220211
